FAERS Safety Report 8152378-3 (Version None)
Quarter: 2012Q1

REPORT INFORMATION
  Report Type: 
  Country: None (occurrence: None)
  Receive Date: 20120214
  Receipt Date: 20120208
  Transmission Date: 20120608
  Serious: Yes (Life-Threatening)
  Sender: FDA-Public Use
  Company Number: 2011SP052897

PATIENT
  Age: 46 Year
  Sex: Female
  Weight: 112 kg

DRUGS (7)
  1. PRESINOL [Concomitant]
  2. CARBIMAZOL [Concomitant]
  3. METHYLDOPA [Concomitant]
  4. ASPIRIN [Concomitant]
  5. FRAGMIN P-FORTE [Concomitant]
  6. BELO-ZOC MITE [Concomitant]
  7. BETAMETHASONE VALERATE [Suspect]
     Indication: MATERNAL THERAPY TO ENHANCE FOETAL LUNG MATURITY
     Dosage: 12 MG

REACTIONS (5)
  - PREMATURE DELIVERY [None]
  - DYSPNOEA [None]
  - ACUTE PULMONARY OEDEMA [None]
  - CAESAREAN SECTION [None]
  - MATERNAL EXPOSURE DURING PREGNANCY [None]
